FAERS Safety Report 7750667-5 (Version None)
Quarter: 2011Q3

REPORT INFORMATION
  Report Type: 
  Country: None (occurrence: None)
  Receive Date: 20110914
  Receipt Date: 20110909
  Transmission Date: 20111222
  Serious: Yes (Disabling)
  Sender: FDA-Public Use
  Company Number: ZA-GLAXOSMITHKLINE-B0747075A

PATIENT
  Age: 55 Year
  Sex: Female

DRUGS (2)
  1. LAMICTAL [Suspect]
     Indication: BIPOLAR I DISORDER
     Dosage: 50MG PER DAY
     Route: 065
     Dates: start: 20080101
  2. KEPPRA [Suspect]
     Indication: PRODUCT USED FOR UNKNOWN INDICATION
     Dosage: 250MG PER DAY
     Route: 065
     Dates: start: 20080101

REACTIONS (2)
  - WEIGHT DECREASED [None]
  - MUSCLE ATROPHY [None]
